FAERS Safety Report 18142479 (Version 1)
Quarter: 2020Q3

REPORT INFORMATION
  Report Type: Spontaneous
  Country: DK (occurrence: DK)
  Receive Date: 20200813
  Receipt Date: 20200813
  Transmission Date: 20201103
  Serious: Yes (Hospitalization)
  Sender: FDA-Public Use
  Company Number: DK-TEVA-2020-DK-1812997

PATIENT
  Age: 77 Year
  Sex: Female

DRUGS (3)
  1. METOCLOPRAMIDE ^ORION^ [Concomitant]
     Active Substance: METOCLOPRAMIDE
     Indication: PRODUCT USED FOR UNKNOWN INDICATION
     Dosage: STRENGTH AND DOSAGE: UNKNOWN
     Route: 048
  2. EMTHEXATE [Suspect]
     Active Substance: METHOTREXATE
     Indication: RHEUMATOID ARTHRITIS
     Dosage: 15 MG
     Route: 048
     Dates: start: 2018, end: 202007
  3. TAMOXIFEN ^SANDOZ^ [Concomitant]
     Indication: ANTIOESTROGEN THERAPY
     Dosage: 20 MG
     Route: 048
     Dates: start: 20161014

REACTIONS (4)
  - Medication error [Unknown]
  - Fatigue [Unknown]
  - Pancytopenia [Recovering/Resolving]
  - Decreased appetite [Unknown]

NARRATIVE: CASE EVENT DATE: 2020
